FAERS Safety Report 9649111 (Version 1)
Quarter: 2013Q4

REPORT INFORMATION
  Report Type: Spontaneous
  Country: US (occurrence: US)
  Receive Date: 20131028
  Receipt Date: 20131028
  Transmission Date: 20140711
  Serious: No
  Sender: FDA-Public Use
  Company Number: US-SA-2013SA095561

PATIENT
  Age: 36 Year
  Sex: Male

DRUGS (13)
  1. LUMIZYME [Suspect]
     Indication: GLYCOGEN STORAGE DISEASE TYPE II
     Dosage: FREQUENCY: EVERY 2 WEEKS; FORM INFUSION
     Route: 065
     Dates: start: 201302
  2. VITAMIN C [Concomitant]
  3. DILTIAZEM [Concomitant]
     Dosage: DOSE: 30 UNITS: UNKNOWN
  4. DOCUSATE [Concomitant]
  5. DULOXETINE HYDROCHLORIDE [Concomitant]
  6. FENTANYL [Concomitant]
     Dosage: EVERY 72 HOURS.
  7. FERROUS SULFATE [Concomitant]
  8. DUONEB [Concomitant]
  9. ATIVAN [Concomitant]
  10. AMITIZA [Concomitant]
  11. MIRTAZAPINE [Concomitant]
     Dosage: AT BEDTIME
  12. PERCOCET [Concomitant]
     Dosage: 1-2 TAB EVERY 6 HOUR AS NEEDED.
  13. MIRALAX [Concomitant]

REACTIONS (1)
  - Dyspnoea [Recovered/Resolved]
